FAERS Safety Report 15067419 (Version 1)
Quarter: 2018Q2

REPORT INFORMATION
  Report Type: Spontaneous
  Country: US (occurrence: US)
  Receive Date: 20180606
  Receipt Date: 20180606
  Transmission Date: 20180711
  Serious: Yes (Disabling)
  Sender: FDA-Public Use
  Company Number: None

PATIENT
  Age: 60 Year
  Sex: Female
  Weight: 67.5 kg

DRUGS (7)
  1. CALCIUM [Concomitant]
     Active Substance: CALCIUM
  2. ARED [Concomitant]
  3. FISH OIL [Concomitant]
     Active Substance: FISH OIL
  4. CIPROFLOXACIN HCL [Suspect]
     Active Substance: CIPROFLOXACIN HYDROCHLORIDE
     Indication: URINARY TRACT INFECTION
     Dosage: ?          QUANTITY:1 DF DOSAGE FORM;?
     Route: 048
     Dates: start: 20180526, end: 20180530
  5. PROBIOTIC [Concomitant]
     Active Substance: PROBIOTICS NOS
  6. TURMERIC [Concomitant]
     Active Substance: HERBALS\TURMERIC
  7. MULTIVITAMIN [Concomitant]
     Active Substance: VITAMINS

REACTIONS (1)
  - Tendonitis [None]

NARRATIVE: CASE EVENT DATE: 20180531
